FAERS Safety Report 16145485 (Version 1)
Quarter: 2019Q2

REPORT INFORMATION
  Report Type: Spontaneous
  Country: US (occurrence: US)
  Receive Date: 20190402
  Receipt Date: 20190402
  Transmission Date: 20190711
  Serious: No
  Sender: FDA-Public Use
  Company Number: US-AUROBINDO-AUR-APL-2019-001608

PATIENT

DRUGS (2)
  1. NORLYDA [Concomitant]
     Active Substance: NORETHINDRONE
     Indication: PRODUCT USED FOR UNKNOWN INDICATION
  2. SERTRALINE HCL [Suspect]
     Active Substance: SERTRALINE HYDROCHLORIDE
     Indication: ANXIETY
     Dosage: 1/2 TABLET PER DAY FOR 07 DAYS AND THEN 01 TABLET PER DAY
     Route: 065
     Dates: start: 20190105, end: 20190105

REACTIONS (2)
  - Wrong technique in product usage process [Unknown]
  - Throat irritation [Recovered/Resolved]

NARRATIVE: CASE EVENT DATE: 20190105
